FAERS Safety Report 5603116-7 (Version None)
Quarter: 2008Q1

REPORT INFORMATION
  Report Type: 
  Country: None (occurrence: None)
  Receive Date: 20080125
  Receipt Date: 20080118
  Transmission Date: 20080703
  Serious: Yes (Other)
  Sender: FDA-Public Use
  Company Number: PFIZER INC-2008006489

PATIENT
  Sex: Female
  Weight: 72.727 kg

DRUGS (2)
  1. DETROL LA [Suspect]
     Indication: HYPERTONIC BLADDER
  2. GLUCOSAMINE [Concomitant]

REACTIONS (1)
  - POLYURIA [None]
